FAERS Safety Report 18604272 (Version 2)
Quarter: 2020Q4

REPORT INFORMATION
  Report Type: Other
  Country: IE (occurrence: IE)
  Receive Date: 20201211
  Receipt Date: 20201224
  Transmission Date: 20210114
  Serious: Yes (Hospitalization, Other)
  Sender: FDA-Public Use
  Company Number: IE-ROCHE-2730677

PATIENT
  Age: 52 Year
  Sex: Female

DRUGS (2)
  1. XOLAIR [Suspect]
     Active Substance: OMALIZUMAB
     Route: 058
     Dates: start: 20201116
  2. XOLAIR [Suspect]
     Active Substance: OMALIZUMAB
     Indication: ASTHMA
     Dosage: 300 MG
     Route: 058
     Dates: start: 20200817, end: 20201116

REACTIONS (6)
  - Dyspnoea [Recovered/Resolved]
  - Peak expiratory flow rate decreased [Unknown]
  - Rash erythematous [Unknown]
  - Rash pruritic [Unknown]
  - Rash [Recovered/Resolved]
  - Urticaria [Recovered/Resolved]
